FAERS Safety Report 7444144-9 (Version None)
Quarter: 2011Q2

REPORT INFORMATION
  Report Type: 
  Country: None (occurrence: None)
  Receive Date: 20110419
  Receipt Date: 20110404
  Transmission Date: 20111010
  Serious: Yes (Hospitalization)
  Sender: FDA-Public Use
  Company Number: IDA-00527

PATIENT
  Age: 75 Year
  Sex: Female

DRUGS (9)
  1. NEXIUM [Concomitant]
  2. POLYETHYLENE GLYCOL [Concomitant]
  3. COSOPT [Suspect]
     Indication: GLAUCOMA
     Dosage: 2 GTT DAILY OPHTHALMIC FORMULATION: UNKNOWN
     Dates: end: 20101013
  4. PROPRANOLOL [Suspect]
     Indication: HYPERTENSION
     Dosage: 160 MG DAILY ORAL FORMULATION: UNKNOWN
     Dates: end: 20101215
  5. COZAAR [Concomitant]
  6. EXELON [Suspect]
     Indication: DEMENTIA ALZHEIMER'S TYPE
     Dosage: 9.5 MG DAILY TRANSDERMAL FORMULATION: UNKNOWN
     Dates: start: 20090106
  7. GLUCOVANCE (GLIBENCLAMIDE, METFORMIN) [Concomitant]
  8. ACTONEL [Concomitant]
  9. CALTRATE + D (CALCIUM CARBONATE, VITAMIN D NOS) [Concomitant]

REACTIONS (4)
  - BRADYCARDIA [None]
  - FEMORAL NECK FRACTURE [None]
  - CONFUSIONAL STATE [None]
  - BLOOD GLUCOSE INCREASED [None]
